FAERS Safety Report 14671354 (Version 1)
Quarter: 2018Q1

REPORT INFORMATION
  Report Type: Report from Study
  Country: US (occurrence: US)
  Receive Date: 20180323
  Receipt Date: 20180323
  Transmission Date: 20180509
  Serious: Yes (Other)
  Sender: FDA-Public Use
  Company Number: US-ROCHE-1737562

PATIENT

DRUGS (22)
  1. ALLOPURINOL. [Concomitant]
     Active Substance: ALLOPURINOL
     Indication: PROPHYLAXIS
     Route: 048
     Dates: start: 20140912, end: 20141011
  2. CLARITHROMYCIN. [Concomitant]
     Active Substance: CLARITHROMYCIN
     Route: 048
     Dates: start: 20130130, end: 20141208
  3. IGG [Concomitant]
     Active Substance: HUMAN IMMUNOGLOBULIN G
     Indication: HYPOGAMMAGLOBULINAEMIA
     Route: 042
     Dates: start: 20150209, end: 20150209
  4. DEXTROSE. [Concomitant]
     Active Substance: DEXTROSE
     Dosage: KEEP VEIN OPEN
     Route: 042
     Dates: start: 20150209, end: 20150209
  5. TYLENOL [Concomitant]
     Active Substance: ACETAMINOPHEN
     Route: 048
     Dates: start: 20140919, end: 20140919
  6. OBINUTUZUMAB. [Suspect]
     Active Substance: OBINUTUZUMAB
     Indication: CHRONIC LYMPHOCYTIC LEUKAEMIA
     Dosage: CYCLE 1 DAY 1 (C1D1): 100 MG, C2D2: 900 MG, C1 D8 AND D15 1000 MG FOLLOWED BY 1000 MG ON CYCLES 2-6
     Route: 042
  7. BIOTIN [Concomitant]
     Active Substance: BIOTIN
     Dosage: SUPPLEMENT
     Route: 048
     Dates: start: 20130122
  8. MYCOSTATIN [Concomitant]
     Active Substance: NYSTATIN
     Indication: STOMATITIS
     Route: 050
     Dates: start: 20141104, end: 20141208
  9. OMEGA 3 FATTY ACIDS [Concomitant]
     Active Substance: OMEGA-3 FATTY ACIDS
     Dosage: SUPPLEMENT
     Route: 048
     Dates: start: 20130122
  10. ACYCLOVIR. [Concomitant]
     Active Substance: ACYCLOVIR
     Indication: ANTIVIRAL PROPHYLAXIS
     Dosage: SHINGLES PROPHYLAXIS
     Route: 048
     Dates: start: 20140915
  11. ATIVAN [Concomitant]
     Active Substance: LORAZEPAM
     Indication: ORAL HERPES
     Route: 048
     Dates: start: 20140918, end: 20140918
  12. LASIX [Concomitant]
     Active Substance: FUROSEMIDE
     Indication: BLOOD PRESSURE SYSTOLIC INCREASED
     Route: 042
     Dates: start: 20150917, end: 20150917
  13. VITAMIN B COMPLEX [Concomitant]
     Active Substance: CYANOCOBALAMIN\DEXPANTHENOL\NIACINAMIDE\PYRIDOXINE HYDROCHLORIDE\RIBOFLAVIN 5^-PHOSPHATE SODIUM\THIAMINE HYDROCHLORIDE\VITAMIN B COMPLEX
     Dosage: SUPPLEMENT
     Route: 048
     Dates: start: 20130122
  14. METHYLPREDNISOLONE. [Suspect]
     Active Substance: METHYLPREDNISOLONE
     Indication: CHRONIC LYMPHOCYTIC LEUKAEMIA
     Dosage: FROM DAYS 1-3 IN 28 DAYS CYCLE FOR 1-4 CYCLES
     Route: 042
  15. DIFLUCAN [Concomitant]
     Active Substance: FLUCONAZOLE
     Dosage: FUNGAL PROPHYLAXIS
     Route: 048
     Dates: start: 20140919, end: 20141019
  16. ACYCLOVIR. [Concomitant]
     Active Substance: ACYCLOVIR
     Indication: ORAL HERPES
  17. SEPTRA DS [Concomitant]
     Active Substance: SULFAMETHOXAZOLE\TRIMETHOPRIM
     Dosage: PNEUMONIA INFECTION PROPHYLAXIS?MON AND THURS
     Route: 048
     Dates: start: 20140915, end: 20150609
  18. MYCOSTATIN [Concomitant]
     Active Substance: NYSTATIN
     Indication: MUCOSAL INFLAMMATION
  19. TYLENOL [Concomitant]
     Active Substance: ACETAMINOPHEN
     Indication: SINUSITIS
     Route: 048
     Dates: start: 20150109, end: 20150109
  20. ZITHROMAX [Concomitant]
     Active Substance: AZITHROMYCIN DIHYDRATE
     Indication: SINUSITIS
     Route: 048
     Dates: start: 20141216, end: 20141221
  21. ZOFRAN [Concomitant]
     Active Substance: ONDANSETRON HYDROCHLORIDE
     Dosage: NAUSEA - INFUSION RXN
     Route: 042
     Dates: start: 20140915, end: 20140915
  22. TYLENOL [Concomitant]
     Active Substance: ACETAMINOPHEN
     Route: 048
     Dates: start: 20140916, end: 20140916

REACTIONS (3)
  - Alanine aminotransferase increased [Recovered/Resolved with Sequelae]
  - Tumour lysis syndrome [Recovered/Resolved]
  - Neutropenia [Recovered/Resolved]

NARRATIVE: CASE EVENT DATE: 20140916
